FAERS Safety Report 5018874-2 (Version None)
Quarter: 2006Q2

REPORT INFORMATION
  Report Type: 
  Country: None (occurrence: None)
  Receive Date: 20060530
  Receipt Date: 20050725
  Transmission Date: 20061013
  Serious: Yes (Other)
  Sender: FDA-Public Use
  Company Number: 2005107035

PATIENT
  Age: 48 Year
  Sex: Male
  Weight: 90 kg

DRUGS (2)
  1. LYRICA [Suspect]
     Indication: NEURALGIA
     Dosage: 75 MG (1 IN 1 D), ORAL
     Route: 048
     Dates: start: 20050304, end: 20050310
  2. CARBAMAZEPINE [Concomitant]

REACTIONS (1)
  - CONVULSION [None]
